FAERS Safety Report 7693510-5 (Version None)
Quarter: 2011Q3

REPORT INFORMATION
  Report Type: 
  Country: None (occurrence: None)
  Receive Date: 20110819
  Receipt Date: 20110819
  Transmission Date: 20111222
  Serious: Yes (Hospitalization)
  Sender: FDA-Public Use
  Company Number: None

PATIENT
  Age: 49 Year
  Sex: Female

DRUGS (2)
  1. XOLAIR [Suspect]
  2. NAPROXEN (ALEVE) [Concomitant]

REACTIONS (1)
  - DYSPNOEA [None]
